FAERS Safety Report 6983149-9 (Version None)
Quarter: 2010Q3

REPORT INFORMATION
  Report Type: 
  Country: None (occurrence: None)
  Receive Date: 20100914
  Receipt Date: 20100622
  Transmission Date: 20110219
  Serious: No
  Sender: FDA-Public Use
  Company Number: US-PFIZER INC-2010078216

PATIENT
  Sex: Female
  Weight: 49.441 kg

DRUGS (8)
  1. LYRICA [Suspect]
     Indication: NERVE INJURY
     Dosage: FREQUENCY: 2X/DAY,
     Route: 048
     Dates: start: 20100618
  2. LYRICA [Suspect]
     Indication: PAIN
  3. GABAPENTIN [Suspect]
     Indication: NERVE INJURY
     Route: 048
     Dates: start: 20080801
  4. GABAPENTIN [Suspect]
     Indication: PAIN
  5. FLEXERIL [Concomitant]
     Dosage: FREQUENCY: 3X/DAY,
  6. HYDROCODONE [Concomitant]
  7. MORPHINE SULFATE [Concomitant]
     Dosage: UNK
  8. CYMBALTA [Concomitant]
     Dosage: UNK

REACTIONS (6)
  - AGEUSIA [None]
  - FEELING ABNORMAL [None]
  - HEADACHE [None]
  - MOVEMENT DISORDER [None]
  - PAIN OF SKIN [None]
  - WEIGHT INCREASED [None]
